FAERS Safety Report 20686486 (Version 1)
Quarter: 2022Q2

REPORT INFORMATION
  Report Type: Spontaneous
  Country: US (occurrence: US)
  Receive Date: 20220407
  Receipt Date: 20220407
  Transmission Date: 20220721
  Serious: No
  Sender: FDA-Public Use
  Company Number: US-BIOMARINAP-US-2022-142500

PATIENT
  Sex: Female
  Weight: 10.794 kg

DRUGS (2)
  1. SAPROPTERIN DIHYDROCHLORIDE [Suspect]
     Active Substance: SAPROPTERIN DIHYDROCHLORIDE
     Indication: Phenylketonuria
     Dosage: UNK, QD
     Route: 048
  2. PERIFLEX [Concomitant]
     Indication: Product used for unknown indication

REACTIONS (2)
  - Dermatitis diaper [Unknown]
  - Diarrhoea [Unknown]
